FAERS Safety Report 5512416-0 (Version None)
Quarter: 2007Q4

REPORT INFORMATION
  Report Type: 
  Country: None (occurrence: None)
  Receive Date: 20071112
  Receipt Date: 20070523
  Transmission Date: 20080405
  Serious: No
  Sender: FDA-Public Use
  Company Number: A0591684A

PATIENT
  Age: 86 Year
  Sex: Male
  Weight: 86.4 kg

DRUGS (7)
  1. AVANDAMET [Suspect]
     Dosage: .5TAB TWICE PER DAY
     Route: 048
     Dates: start: 20020101
  2. FLOMAX [Suspect]
     Dosage: 2.5MG PER DAY
     Route: 048
     Dates: start: 20030101, end: 20070401
  3. NEXIUM [Concomitant]
  4. GLYBURIDE [Concomitant]
  5. AVODART [Concomitant]
  6. PROCRIT [Concomitant]
  7. UNSPECIFIED MEDICATION [Concomitant]

REACTIONS (4)
  - BREAST ENLARGEMENT [None]
  - BREAST TENDERNESS [None]
  - NIPPLE PAIN [None]
  - URINARY RETENTION [None]
